FAERS Safety Report 9669953 (Version 4)
Quarter: 2013Q4

REPORT INFORMATION
  Report Type: Spontaneous
  Country: US (occurrence: US)
  Receive Date: 20131105
  Receipt Date: 20131220
  Transmission Date: 20140711
  Serious: Yes (Hospitalization)
  Sender: FDA-Public Use
  Company Number: US-GLAXOSMITHKLINE-A1048295A

PATIENT
  Age: 84 Year
  Sex: Female

DRUGS (2)
  1. ADVAIR [Suspect]
     Indication: RESPIRATORY DISORDER
     Route: 055
     Dates: start: 20131129
  2. SPIRIVA [Concomitant]

REACTIONS (6)
  - Hip fracture [Unknown]
  - Fall [Unknown]
  - Respiratory disorder [Unknown]
  - Condition aggravated [Unknown]
  - Feeling abnormal [Unknown]
  - Cough [Unknown]
